FAERS Safety Report 9273679 (Version 1)
Quarter: 2013Q2

REPORT INFORMATION
  Report Type: Spontaneous
  Country: US (occurrence: US)
  Receive Date: 20130506
  Receipt Date: 20130506
  Transmission Date: 20140414
  Serious: No
  Sender: FDA-Public Use
  Company Number: US-AMGEN-USASP2013025762

PATIENT
  Age: 55 Year
  Sex: Female

DRUGS (3)
  1. ENBREL [Suspect]
     Indication: PRODUCT USED FOR UNKNOWN INDICATION
     Dosage: UNK
  2. HUMIRA [Suspect]
     Dosage: 40 MG, UNK
  3. STELARA [Suspect]
     Dosage: UNK

REACTIONS (3)
  - Oedema peripheral [Unknown]
  - Joint swelling [Unknown]
  - Drug ineffective [Unknown]
